FAERS Safety Report 5720099-X (Version None)
Quarter: 2008Q2

REPORT INFORMATION
  Report Type: 
  Country: None (occurrence: None)
  Receive Date: 20080428
  Receipt Date: 20080417
  Transmission Date: 20081010
  Serious: Yes (Hospitalization)
  Sender: FDA-Public Use
  Company Number: JP-ASTRAZENECA-2007AP07012

PATIENT
  Age: 21 Year
  Sex: Male
  Weight: 54 kg

DRUGS (10)
  1. DIPRIVAN [Suspect]
     Indication: INDUCTION OF ANAESTHESIA
     Route: 042
  2. ANAPEINE INJECTION [Suspect]
     Indication: EPIDURAL ANAESTHESIA
     Route: 008
  3. ANAPEINE INJECTION [Suspect]
     Route: 008
  4. CARBOCAIN INJECTION [Suspect]
     Indication: EPIDURAL ANAESTHESIA
     Route: 008
  5. OXYGEN [Concomitant]
     Indication: MAINTENANCE OF ANAESTHESIA
     Route: 055
  6. SEVOFLURANE [Concomitant]
     Indication: MAINTENANCE OF ANAESTHESIA
     Dosage: DOSE UNKNOWN
     Route: 055
  7. MORPHINE HCL ELIXIR [Concomitant]
     Indication: EPIDURAL ANAESTHESIA
     Route: 008
  8. MORPHINE HCL ELIXIR [Concomitant]
     Route: 041
  9. FENTANYL CITRATE [Concomitant]
     Indication: MAINTENANCE OF ANAESTHESIA
     Route: 042
  10. ISOTONIC SODIUM CHLORIDE SOLUTION [Concomitant]
     Route: 041

REACTIONS (1)
  - SPINAL CORD INFARCTION [None]
